FAERS Safety Report 16777340 (Version 1)
Quarter: 2019Q4

REPORT INFORMATION
  Report Type: Spontaneous
  Country: US (occurrence: US)
  Receive Date: 20190905
  Receipt Date: 20190905
  Transmission Date: 20200122
  Serious: Yes (Hospitalization)
  Sender: FDA-Public Use
  Company Number: None

PATIENT
  Age: 38 Year
  Sex: Female

DRUGS (14)
  1. CEPHALEXIN CAP 500 MG [Concomitant]
  2. FLUCONAZOLE TAB 150 MG [Concomitant]
  3. TOPIRAMATE TAB 50 MG [Concomitant]
  4. FAMOTIDINE TAB 40 MG [Concomitant]
  5. BISACODYL TAB 5 MG EC [Concomitant]
  6. METRONIDONAZOLE TAB 500 MG [Concomitant]
  7. ONDANSETRON TAB 4 MG [Concomitant]
  8. STELARA [Suspect]
     Active Substance: USTEKINUMAB
     Indication: CROHN^S DISEASE
     Dosage: 90 MG SUBCUTANEOUS EVERY 8 WEEKS
     Route: 058
     Dates: start: 20180531
  9. SMZ/TMP DS TAB 800-160 [Concomitant]
     Active Substance: SULFAMETHOXAZOLE\TRIMETHOPRIM
  10. HYDROCO/APAP TAB 10-325 MG [Concomitant]
  11. NEOMYCIN TAB 500 MG [Concomitant]
  12. ERYTHROMYCIN TAB 500 MG BS [Concomitant]
  13. CARTIA XT CAP 120/24 HR [Concomitant]
  14. GABAPENTIN TAB 800 MG [Concomitant]

REACTIONS (4)
  - Urinary tract infection [None]
  - Colostomy [None]
  - Fungal infection [None]
  - Infection [None]

NARRATIVE: CASE EVENT DATE: 20190808
